FAERS Safety Report 11474863 (Version 1)
Quarter: 2015Q3

REPORT INFORMATION
  Report Type: Report from Study
  Country: ES (occurrence: ES)
  Receive Date: 20150908
  Receipt Date: 20150908
  Transmission Date: 20151125
  Serious: No
  Sender: FDA-Public Use
  Company Number: ES-JAZZ-2014-ES-002353

PATIENT
  Age: 32 Year
  Sex: Female
  Weight: 73 kg

DRUGS (3)
  1. FERROUS SULFATE [Concomitant]
     Active Substance: FERROUS SULFATE\FERROUS SULFATE, DRIED
     Indication: PRODUCT USED FOR UNKNOWN INDICATION
     Dosage: UNK
     Dates: start: 20140710, end: 20141010
  2. XYREM [Suspect]
     Active Substance: SODIUM OXYBATE
     Indication: NARCOLEPSY
     Dosage: 3.5 G, BID
     Route: 048
     Dates: start: 20130718, end: 20131202
  3. FOLIC ACID W/VITAMIN B12 [Concomitant]
     Indication: PREGNANCY
     Dosage: 300 MG, QD
     Route: 048
     Dates: start: 201312

REACTIONS (1)
  - Pregnancy [Recovered/Resolved]

NARRATIVE: CASE EVENT DATE: 20131124
